FAERS Safety Report 4776691-2 (Version None)
Quarter: 2005Q3

REPORT INFORMATION
  Report Type: 
  Country: None (occurrence: None)
  Receive Date: 20050923
  Receipt Date: 20050912
  Transmission Date: 20060218
  Serious: Yes (Death)
  Sender: FDA-Public Use
  Company Number: US-JNJFOC-20040802257

PATIENT
  Sex: Female

DRUGS (9)
  1. INFLIXIMAB [Suspect]
     Indication: RHEUMATOID ARTHRITIS
     Route: 042
  2. LANOXIN [Concomitant]
  3. COUMADIN [Concomitant]
  4. PREDNISONE [Concomitant]
  5. IRON SUPPLEMENT [Concomitant]
  6. OSTEO BI-FLEX [Concomitant]
  7. OSTEO BI-FLEX [Concomitant]
  8. CALCIUM GLUCONATE [Concomitant]
  9. TYLENOL [Concomitant]

REACTIONS (1)
  - MYELODYSPLASTIC SYNDROME [None]
